FAERS Safety Report 4533220-6 (Version None)
Quarter: 2004Q4

REPORT INFORMATION
  Report Type: 
  Country: None (occurrence: None)
  Receive Date: 20041220
  Receipt Date: 20041220
  Transmission Date: 20050328
  Serious: Yes (Other)
  Sender: FDA-Public Use
  Company Number: None

PATIENT
  Sex: Female
  Weight: 63.5036 kg

DRUGS (1)
  1. LIPITOR [Suspect]
     Indication: BLOOD CHOLESTEROL INCREASED
     Dosage: 10MG   DAILY    ORAL
     Route: 048
     Dates: start: 20040520, end: 20040820

REACTIONS (4)
  - CONFUSIONAL STATE [None]
  - DECREASED ACTIVITY [None]
  - MYALGIA [None]
  - VISION BLURRED [None]
